FAERS Safety Report 8415086-7 (Version None)
Quarter: 2012Q2

REPORT INFORMATION
  Report Type: 
  Country: None (occurrence: None)
  Receive Date: 20120606
  Receipt Date: 20120523
  Transmission Date: 20120825
  Serious: Yes (Death, Life-Threatening, Hospitalization)
  Sender: FDA-Public Use
  Company Number: DE-RANBAXY-2009RR-26246

PATIENT
  Age: 50 Year
  Sex: Female

DRUGS (2)
  1. RAMIPRIL [Concomitant]
     Indication: HYPERTENSION
     Dosage: 1X5 MG
     Route: 065
     Dates: start: 20090421
  2. ENALAPRIL MALEATE [Suspect]
     Indication: HYPERTENSION
     Dosage: 5 MG, QD
     Route: 048
     Dates: start: 20070101, end: 20090420

REACTIONS (1)
  - PANCREATITIS NECROTISING [None]
